FAERS Safety Report 10519792 (Version 2)
Quarter: 2014Q4

REPORT INFORMATION
  Report Type: Spontaneous
  Country: CA (occurrence: CA)
  Receive Date: 20141015
  Receipt Date: 20141028
  Transmission Date: 20150528
  Serious: Yes (Hospitalization)
  Sender: FDA-Public Use
  Company Number: CA-BRISTOL-MYERS SQUIBB COMPANY-21490230

PATIENT
  Age: 22 Year
  Sex: Male

DRUGS (2)
  1. ABILIFY [Suspect]
     Active Substance: ARIPIPRAZOLE
     Dosage: 5 MG Q/S
     Route: 048
     Dates: start: 20140822, end: 20141006
  2. RISPERDAL [Suspect]
     Active Substance: RISPERIDONE

REACTIONS (5)
  - Agitation [Recovering/Resolving]
  - Abnormal behaviour [Unknown]
  - Off label use [Unknown]
  - Psychotic disorder [Recovering/Resolving]
  - Aggression [Recovering/Resolving]

NARRATIVE: CASE EVENT DATE: 20140822
